FAERS Safety Report 8999920 (Version 1)
Quarter: 2013Q1

REPORT INFORMATION
  Report Type: Spontaneous
  Country: CH (occurrence: CH)
  Receive Date: 20130102
  Receipt Date: 20130102
  Transmission Date: 20140127
  Serious: Yes (Life-Threatening, Other)
  Sender: FDA-Public Use
  Company Number: CH-ASTRAZENECA-2012SE95105

PATIENT
  Age: 0 Day
  Sex: Female
  Weight: 2.8 kg

DRUGS (6)
  1. SEROQUEL [Suspect]
     Route: 064
     Dates: start: 2010
  2. SERTRALIN [Suspect]
     Route: 064
     Dates: start: 2010, end: 201206
  3. TRAMAL [Suspect]
     Indication: BACK PAIN
     Route: 064
     Dates: start: 2010
  4. IMOVANE [Suspect]
     Dosage: 7.5 MG DAILY (+ 3.75 MG IN RESERVE)
     Route: 064
     Dates: start: 2010
  5. TEMESTA [Suspect]
     Route: 064
     Dates: start: 2012
  6. TRANXILIUM [Suspect]
     Route: 064
     Dates: start: 2010, end: 2012

REACTIONS (3)
  - Hypotonia neonatal [Recovered/Resolved]
  - Neonatal respiratory distress syndrome [Recovered/Resolved]
  - Bradycardia [Recovered/Resolved]
